FAERS Safety Report 17052534 (Version 1)
Quarter: 2019Q4

REPORT INFORMATION
  Report Type: Spontaneous
  Country: US (occurrence: US)
  Receive Date: 20191119
  Receipt Date: 20191119
  Transmission Date: 20200122
  Serious: Yes (Hospitalization)
  Sender: FDA-Public Use
  Company Number: None

PATIENT
  Age: 81 Year
  Sex: Female

DRUGS (22)
  1. ALPRAZOLAM TAB 0.25 MG [Concomitant]
  2. FLECTOR DIS 1.3% [Concomitant]
  3. FOLIC ACID TAB 1 MG [Concomitant]
  4. MELATONIN TAB 5 MG [Concomitant]
  5. RESTASIS EMU 0.05% [Concomitant]
  6. VESICARE TAB 5 MG [Concomitant]
  7. AMBIEN TAB 5 MG [Concomitant]
  8. BENADRYL CAP 25 MG [Concomitant]
  9. GABAPENTIN CAP 300 MG [Concomitant]
  10. LUTEIN CAP 20 MG [Concomitant]
  11. COREG TAB 3.125 MG [Concomitant]
  12. ZALEPLON CAP 10 MG [Concomitant]
  13. CELEBREX CAP 200 MG [Concomitant]
  14. LIVALO TAB 2 MG [Concomitant]
  15. SYNTHROID TAB 100 MCG [Concomitant]
  16. VOLTAREN [Concomitant]
     Active Substance: DICLOFENAC SODIUM
  17. TASIGNA [Suspect]
     Active Substance: NILOTINIB
     Indication: CHRONIC MYELOID LEUKAEMIA
     Route: 048
     Dates: start: 20191028
  18. SINGULAIR TAB 10 MG [Concomitant]
  19. RED YEAST CAP 600 MG [Concomitant]
  20. FLONASE ALGY SPR 50 MCG [Concomitant]
  21. OMEGA 3 CAP [Concomitant]
  22. VIVELLE-DOT DIS 0.05 MG [Concomitant]

REACTIONS (5)
  - Vision blurred [None]
  - Visual impairment [None]
  - Transient ischaemic attack [None]
  - Myocardial infarction [None]
  - Atrial fibrillation [None]

NARRATIVE: CASE EVENT DATE: 20191113
